FAERS Safety Report 16137561 (Version 1)
Quarter: 2019Q2

REPORT INFORMATION
  Report Type: Spontaneous
  Country: IT (occurrence: IT)
  Receive Date: 20190401
  Receipt Date: 20190401
  Transmission Date: 20190711
  Serious: Yes (Hospitalization)
  Sender: FDA-Public Use
  Company Number: IT-DRREDDYS-GER/ITL/19/0109017

PATIENT
  Age: 90 Year
  Sex: Male

DRUGS (6)
  1. CLOPIDOGREL [Suspect]
     Active Substance: CLOPIDOGREL BISULFATE
     Indication: ISCHAEMIC STROKE
     Route: 048
     Dates: start: 20140824, end: 20190209
  2. LEVODOPA/CARBIDOPA [Concomitant]
     Active Substance: CARBIDOPA\LEVODOPA
     Indication: PRODUCT USED FOR UNKNOWN INDICATION
     Dates: start: 20140823
  3. BISOPROLOL FUMARATE. [Concomitant]
     Active Substance: BISOPROLOL FUMARATE
     Indication: SINUS NODE DYSFUNCTION
     Route: 048
     Dates: start: 20120101
  4. FUROSEMIDE. [Concomitant]
     Active Substance: FUROSEMIDE
     Indication: HYPERTENSION
     Route: 048
     Dates: start: 20120101
  5. LANSOPRAZOLE. [Concomitant]
     Active Substance: LANSOPRAZOLE
     Indication: PRODUCT USED FOR UNKNOWN INDICATION
     Route: 048
     Dates: start: 20140824
  6. NEUPRO 2 MG/24 H 4 MG/24 H 6 MG/24 H 8 MG/24 H TRANSDERMAL PATCH [Concomitant]
     Indication: PRODUCT USED FOR UNKNOWN INDICATION
     Route: 062

REACTIONS (2)
  - Rectal haemorrhage [Recovered/Resolved]
  - Intercepted product prescribing error [Recovered/Resolved]

NARRATIVE: CASE EVENT DATE: 20190209
